FAERS Safety Report 6701105-2 (Version None)
Quarter: 2010Q2

REPORT INFORMATION
  Report Type: 
  Country: None (occurrence: None)
  Receive Date: 20100428
  Receipt Date: 20100428
  Transmission Date: 20101027
  Serious: Yes (Hospitalization)
  Sender: FDA-Public Use
  Company Number: None

PATIENT
  Age: 66 Year
  Sex: Male

DRUGS (3)
  1. WARFARIN SODIUM [Suspect]
     Indication: ANAEMIA
     Dosage: 45 MG QWEEK PO
     Route: 048
     Dates: start: 20091211
  2. WARFARIN SODIUM [Suspect]
     Indication: GASTROINTESTINAL HAEMORRHAGE
     Dosage: 45 MG QWEEK PO
     Route: 048
     Dates: start: 20091211
  3. CLOPIDOGREL [Suspect]
     Indication: INTERNATIONAL NORMALISED RATIO
     Dosage: 75 MG EVERY DAY PO
     Route: 048
     Dates: start: 20020401

REACTIONS (9)
  - ANAEMIA [None]
  - ASTHENIA [None]
  - BRADYCARDIA [None]
  - CHEST PAIN [None]
  - GASTRIC HAEMORRHAGE [None]
  - HAEMORRHAGE [None]
  - HYPOTENSION [None]
  - INTERNATIONAL NORMALISED RATIO INCREASED [None]
  - RESUSCITATION [None]
